FAERS Safety Report 4488136-0 (Version None)
Quarter: 2004Q4

REPORT INFORMATION
  Report Type: 
  Country: None (occurrence: None)
  Receive Date: 20041025
  Receipt Date: 20041008
  Transmission Date: 20050328
  Serious: Yes (Hospitalization)
  Sender: FDA-Public Use
  Company Number: 2004AP04865

PATIENT
  Age: 47 Year
  Sex: Female
  Weight: 55 kg

DRUGS (7)
  1. ZOMIG [Suspect]
     Indication: MIGRAINE
     Dosage: 10 MG DAILY PO
     Route: 048
     Dates: start: 20010904, end: 20021225
  2. LOCHOL [Concomitant]
  3. LIPITOR [Concomitant]
  4. HALCION [Concomitant]
  5. VOLTAREN [Concomitant]
  6. MIGSIS [Concomitant]
  7. ASPIRIN [Concomitant]

REACTIONS (2)
  - CONJUNCTIVAL HAEMORRHAGE [None]
  - HAEMORRHAGIC OVARIAN CYST [None]
